FAERS Safety Report 25664628 (Version 1)
Quarter: 2025Q3

REPORT INFORMATION
  Report Type: Spontaneous
  Country: US (occurrence: US)
  Receive Date: 20250811
  Receipt Date: 20250811
  Transmission Date: 20251021
  Serious: Yes (Other)
  Sender: MDD OPERATIONS
  Company Number: US-002147023-MDD202506-002220

PATIENT
  Age: 67 Year
  Sex: Male

DRUGS (5)
  1. ONAPGO [Suspect]
     Active Substance: APOMORPHINE HYDROCHLORIDE
     Indication: Parkinson^s disease
     Dosage: OVER 16 HOURS
     Route: 058
     Dates: start: 20250616
  2. ONAPGO [Suspect]
     Active Substance: APOMORPHINE HYDROCHLORIDE
     Route: 058
     Dates: start: 202506
  3. ONAPGO [Suspect]
     Active Substance: APOMORPHINE HYDROCHLORIDE
     Route: 058
     Dates: start: 20250710
  4. ONAPGO [Suspect]
     Active Substance: APOMORPHINE HYDROCHLORIDE
     Dosage: CONTINUOUS INFUSION
     Route: 058
     Dates: start: 202507
  5. ONAPGO [Suspect]
     Active Substance: APOMORPHINE HYDROCHLORIDE
     Route: 058
     Dates: start: 2025

REACTIONS (6)
  - COVID-19 pneumonia [Unknown]
  - On and off phenomenon [Unknown]
  - Hallucination [Not Recovered/Not Resolved]
  - Insomnia [Unknown]
  - Infusion site reaction [Unknown]
  - Somnolence [Unknown]

NARRATIVE: CASE EVENT DATE: 20250618
